FAERS Safety Report 13346430 (Version 1)
Quarter: 2017Q1

REPORT INFORMATION
  Report Type: Spontaneous
  Country: FR (occurrence: FR)
  Receive Date: 20170317
  Receipt Date: 20170317
  Transmission Date: 20170428
  Serious: Yes (Death, Hospitalization)
  Sender: FDA-Public Use
  Company Number: FR-INCYTE CORPORATION-2017IN001866

PATIENT
  Age: 75 Year
  Sex: Male

DRUGS (1)
  1. JAKAVI [Suspect]
     Active Substance: RUXOLITINIB
     Indication: MYELOFIBROSIS
     Dosage: 15 MG, BID (1DF)
     Route: 048
     Dates: start: 20160217

REACTIONS (3)
  - Meningoencephalitis viral [Unknown]
  - Acute leukaemia [Fatal]
  - Zika virus infection [Unknown]

NARRATIVE: CASE EVENT DATE: 20160310
